FAERS Safety Report 20755899 (Version 2)
Quarter: 2022Q2

REPORT INFORMATION
  Report Type: Spontaneous
  Country: DE (occurrence: DE)
  Receive Date: 20220427
  Receipt Date: 20220527
  Transmission Date: 20220721
  Serious: Yes (Other)
  Sender: FDA-Public Use
  Company Number: DE-009507513-2204DEU007939

PATIENT
  Sex: Male

DRUGS (2)
  1. KEYTRUDA [Suspect]
     Active Substance: PEMBROLIZUMAB
     Indication: Transitional cell carcinoma
     Dosage: UNK
     Dates: start: 2019
  2. KEYTRUDA [Suspect]
     Active Substance: PEMBROLIZUMAB
     Indication: Metastases to lung

REACTIONS (4)
  - Bladder obstruction [Unknown]
  - Neobladder surgery [Unknown]
  - Renal impairment [Not Recovered/Not Resolved]
  - Vesicoureteric reflux [Unknown]
